FAERS Safety Report 5797652-0 (Version None)
Quarter: 2008Q3

REPORT INFORMATION
  Report Type: 
  Country: None (occurrence: None)
  Receive Date: 20080702
  Receipt Date: 20080619
  Transmission Date: 20090109
  Serious: Yes (Other)
  Sender: FDA-Public Use
  Company Number: US-JNJFOC-20080502556

PATIENT
  Sex: Male
  Weight: 88.91 kg

DRUGS (2)
  1. RISPERDAL [Suspect]
     Indication: DRUG USE FOR UNKNOWN INDICATION
  2. VISTARIL [Concomitant]

REACTIONS (8)
  - DYSPNOEA [None]
  - HEART INJURY [None]
  - HEART RATE IRREGULAR [None]
  - HYPERHIDROSIS [None]
  - MUSCLE SPASMS [None]
  - PALPITATIONS [None]
  - RESTLESSNESS [None]
  - TACHYCARDIA [None]
